FAERS Safety Report 4698227-7 (Version None)
Quarter: 2005Q2

REPORT INFORMATION
  Report Type: 
  Country: None (occurrence: None)
  Receive Date: 20050623
  Receipt Date: 20050616
  Transmission Date: 20051028
  Serious: Yes (Hospitalization)
  Sender: FDA-Public Use
  Company Number: US-BRISTOL-MYERS SQUIBB COMPANY-13006168

PATIENT
  Age: 62 Year
  Sex: Male
  Weight: 114 kg

DRUGS (5)
  1. ERBITUX [Suspect]
     Indication: COLON CANCER
     Dosage: 1ST DOSE.
     Route: 042
     Dates: start: 20050531, end: 20050531
  2. TYLENOL [Concomitant]
     Indication: PREMEDICATION
     Route: 048
     Dates: start: 20050531, end: 20050531
  3. BENADRYL [Concomitant]
     Indication: PREMEDICATION
     Route: 042
     Dates: start: 20050531, end: 20050531
  4. METOPROLOL [Concomitant]
  5. ASPIRIN [Concomitant]

REACTIONS (4)
  - CHILLS [None]
  - DIZZINESS [None]
  - DYSPNOEA [None]
  - HEADACHE [None]
